FAERS Safety Report 6918575-7 (Version None)
Quarter: 2010Q3

REPORT INFORMATION
  Report Type: 
  Country: None (occurrence: None)
  Receive Date: 20100811
  Receipt Date: 20100802
  Transmission Date: 20110219
  Serious: Yes (Hospitalization, Other)
  Sender: FDA-Public Use
  Company Number: CO-JNJFOC-20090706432

PATIENT
  Age: 27 Year
  Sex: Female
  Weight: 43 kg

DRUGS (2)
  1. REMICADE [Suspect]
     Indication: PSORIASIS
     Route: 042
  2. HERBAL PREPARATION [Concomitant]

REACTIONS (1)
  - PERITONEAL TUBERCULOSIS [None]
